FAERS Safety Report 24556515 (Version 1)
Quarter: 2024Q4

REPORT INFORMATION
  Report Type: Spontaneous
  Country: US (occurrence: None)
  Receive Date: 20241027
  Receipt Date: 20241027
  Transmission Date: 20250114
  Serious: Yes (Other)
  Sender: Public
  Company Number: None

PATIENT
  Age: 60 Year
  Sex: Male
  Weight: 95.85 kg

DRUGS (8)
  1. IPRATROPIUM BROMIDE [Suspect]
     Active Substance: IPRATROPIUM BROMIDE
     Indication: Sinusitis
     Dosage: OTHER QUANTITY : 15 ML;?FREQUENCY : 3 TIMES A DAY;?
     Route: 055
     Dates: start: 20241026, end: 20241027
  2. ELIQUIS [Concomitant]
  3. LISINOPRIL [Concomitant]
  4. tadalofil [Concomitant]
  5. Vitamin c [Concomitant]
  6. VITAMIN B [Concomitant]
  7. aspirin 81mg [Concomitant]
  8. DIETARY SUPPLEMENT [Concomitant]
     Active Substance: DIETARY SUPPLEMENT

REACTIONS (3)
  - Abdominal pain [None]
  - Abdominal pain [None]
  - Therapeutic product effect decreased [None]

NARRATIVE: CASE EVENT DATE: 20241027
